FAERS Safety Report 23643046 (Version 1)
Quarter: 2024Q1

REPORT INFORMATION
  Report Type: Spontaneous
  Country: US (occurrence: None)
  Receive Date: 20240315
  Receipt Date: 20240315
  Transmission Date: 20240410
  Serious: Yes (Hospitalization)
  Sender: FDA-Public Use
  Company Number: None

PATIENT
  Age: 33 Year
  Sex: Male
  Weight: 86 kg

DRUGS (1)
  1. YESCARTA [Suspect]
     Active Substance: AXICABTAGENE CILOLEUCEL
     Indication: Diffuse large B-cell lymphoma
     Dates: start: 20230524, end: 20230524

REACTIONS (3)
  - Cytokine release syndrome [None]
  - Immune effector cell-associated neurotoxicity syndrome [None]
  - Seizure [None]

NARRATIVE: CASE EVENT DATE: 20230622
